FAERS Safety Report 8580829-9 (Version None)
Quarter: 2012Q3

REPORT INFORMATION
  Report Type: 
  Country: None (occurrence: None)
  Receive Date: 20120809
  Receipt Date: 20120726
  Transmission Date: 20120928
  Serious: Yes (Other)
  Sender: FDA-Public Use
  Company Number: GB-RANBAXY-2012R1-58664

PATIENT
  Age: 49 Year
  Sex: Male
  Weight: 75 kg

DRUGS (4)
  1. KEPPRA [Interacting]
     Indication: PRODUCT USED FOR UNKNOWN INDICATION
     Dosage: UNK
     Route: 065
  2. OMEPRAZOLE [Concomitant]
     Indication: PRODUCT USED FOR UNKNOWN INDICATION
     Dosage: UNK
     Route: 065
  3. FLUCONAZOLE [Suspect]
     Indication: ORAL CANDIDIASIS
     Dosage: UNK
     Route: 048
     Dates: start: 20120622
  4. VEMURAFENIB [Interacting]
     Indication: MALIGNANT MELANOMA
     Dosage: 960 MG, BID
     Route: 048
     Dates: start: 20120528, end: 20120625

REACTIONS (5)
  - DRUG INTERACTION [None]
  - ALANINE AMINOTRANSFERASE INCREASED [None]
  - NEUTROPENIA [None]
  - LIVER FUNCTION TEST ABNORMAL [None]
  - BLOOD ALKALINE PHOSPHATASE INCREASED [None]
